FAERS Safety Report 8336018-6 (Version None)
Quarter: 2012Q2

REPORT INFORMATION
  Report Type: 
  Country: None (occurrence: None)
  Receive Date: 20120501
  Receipt Date: 20120501
  Transmission Date: 20120825
  Serious: Yes (Hospitalization)
  Sender: FDA-Public Use
  Company Number: None

PATIENT
  Sex: Male
  Weight: 74.8 kg

DRUGS (1)
  1. AFINITOR [Suspect]
     Dosage: 290 MG
     Dates: end: 20120427

REACTIONS (1)
  - DYSPNOEA [None]
